FAERS Safety Report 8904261 (Version 1)
Quarter: 2012Q4

REPORT INFORMATION
  Report Type: 
  Country: ES (occurrence: ES)
  Receive Date: 20121113
  Receipt Date: 20121113
  Transmission Date: 20130627
  Serious: Yes (Life-Threatening, Hospitalization, Other)
  Sender: FDA-Public Use
  Company Number: PHHY2012ES103960

PATIENT
  Age: 35 Year
  Sex: Male

DRUGS (6)
  1. LEPONEX [Suspect]
     Indication: SCHIZOAFFECTIVE DISORDER
     Dosage: 150 mg, QD
     Route: 048
     Dates: start: 201110, end: 20120629
  2. AKINETON RETARD [Concomitant]
  3. DEPAKINE [Concomitant]
  4. TOPAMAX [Concomitant]
  5. PLENUR [Concomitant]
     Dosage: 600 mg, QD
     Route: 048
     Dates: start: 201107, end: 20120629
  6. RISPERDAL [Concomitant]
     Dosage: 200 mg, QMO
     Route: 030
     Dates: start: 2006, end: 20120629

REACTIONS (10)
  - Neuroleptic malignant syndrome [Recovered/Resolved]
  - Bronchospasm [Unknown]
  - Heart rate increased [Unknown]
  - Grand mal convulsion [Unknown]
  - Depressed level of consciousness [Unknown]
  - Hyperthermia [Unknown]
  - Blood creatinine increased [Unknown]
  - Troponin increased [Unknown]
  - Alanine aminotransferase decreased [Unknown]
  - Amylase decreased [Unknown]
